FAERS Safety Report 8822035 (Version 1)
Quarter: 2012Q4

REPORT INFORMATION
  Report Type: 
  Country: US (occurrence: US)
  Receive Date: 20121003
  Receipt Date: 20121003
  Transmission Date: 20130627
  Serious: Yes (Hospitalization, Disabling, Other)
  Sender: FDA-Public Use
  Company Number: US-009507513-1110USA02439

PATIENT

DRUGS (3)
  1. FOSAMAX [Suspect]
     Indication: OSTEOPOROSIS
     Dosage: 70 mg, QW
     Route: 048
     Dates: start: 20020422, end: 20080130
  2. FOSAMAX [Suspect]
     Indication: OSTEOPOROSIS
     Dosage: 70 mg, QW
     Route: 048
     Dates: start: 20080313, end: 20091124
  3. FOSAMAX [Suspect]
     Indication: OSTEOPOROSIS
     Dosage: 70 mg, UNK
     Route: 048

REACTIONS (40)
  - Femur fracture [Not Recovered/Not Resolved]
  - Low turnover osteopathy [Not Recovered/Not Resolved]
  - Femur fracture [Unknown]
  - Internal fixation of fracture [Unknown]
  - Coronary artery disease [Unknown]
  - Renal failure chronic [Not Recovered/Not Resolved]
  - Post procedural haemorrhage [Unknown]
  - Salivary gland cancer [Unknown]
  - Vocal cord paralysis [Recovered/Resolved]
  - Anaemia [Unknown]
  - Back pain [Unknown]
  - Neck pain [Unknown]
  - Asthma [Unknown]
  - Hypercholesterolaemia [Unknown]
  - Sleep disorder [Unknown]
  - Adverse event [Unknown]
  - Fall [Unknown]
  - Contusion [Unknown]
  - Hand fracture [Unknown]
  - Emphysema [Unknown]
  - Chronic obstructive pulmonary disease [Not Recovered/Not Resolved]
  - Osteoarthritis [Unknown]
  - Arthritis [Unknown]
  - Benign breast neoplasm [Unknown]
  - Adverse event [Unknown]
  - Herpes zoster [Unknown]
  - Gallbladder disorder [Unknown]
  - Iron deficiency anaemia [Unknown]
  - Sinus tachycardia [Unknown]
  - Mitral valve incompetence [Unknown]
  - Large intestine polyp [Unknown]
  - Road traffic accident [Unknown]
  - Spinal osteoarthritis [Unknown]
  - Hypoglycaemia [Unknown]
  - Osteopenia [Unknown]
  - Neuralgia [Unknown]
  - Pain [Unknown]
  - Muscle spasms [Unknown]
  - Musculoskeletal chest pain [Unknown]
  - Gastrooesophageal reflux disease [Unknown]
